FAERS Safety Report 20486704 (Version 1)
Quarter: 2022Q1

REPORT INFORMATION
  Report Type: Spontaneous
  Country: US (occurrence: None)
  Receive Date: 20220217
  Receipt Date: 20220217
  Transmission Date: 20220423
  Serious: Yes (Hospitalization)
  Sender: FDA-Public Use
  Company Number: None

PATIENT
  Sex: Male
  Weight: 130.2 kg

DRUGS (6)
  1. CYTARABINE [Suspect]
     Active Substance: CYTARABINE
     Dates: start: 20220126
  2. DAUNORUBICIN [Suspect]
     Active Substance: DAUNORUBICIN
  3. DEXAMETHASONE [Suspect]
     Active Substance: DEXAMETHASONE
  4. METHOTREXATE [Suspect]
     Active Substance: METHOTREXATE
  5. ONCASPAR [Suspect]
     Active Substance: PEGASPARGASE
  6. VINCRISTINE SULFATE [Suspect]
     Active Substance: VINCRISTINE SULFATE

REACTIONS (11)
  - Nausea [None]
  - Vomiting [None]
  - Drug intolerance [None]
  - Constipation [None]
  - Blood bilirubin increased [None]
  - Bilirubin conjugated increased [None]
  - Alanine aminotransferase increased [None]
  - Aspartate aminotransferase increased [None]
  - Hepatic steatosis [None]
  - X-ray gastrointestinal tract abnormal [None]
  - Ascites [None]

NARRATIVE: CASE EVENT DATE: 20220215
